FAERS Safety Report 5104888-0 (Version None)
Quarter: 2006Q3

REPORT INFORMATION
  Report Type: 
  Country: None (occurrence: None)
  Receive Date: 20060914
  Receipt Date: 20060904
  Transmission Date: 20061208
  Serious: Yes (Hospitalization)
  Sender: FDA-Public Use
  Company Number: AU-ROCHE-461671

PATIENT
  Age: 66 Year
  Sex: Female

DRUGS (10)
  1. CEFTRIAXONE SODIUM [Suspect]
     Indication: DRUG USE FOR UNKNOWN INDICATION
     Route: 065
     Dates: start: 20060414, end: 20060501
  2. PHENYTOIN SODIUM [Suspect]
     Indication: DRUG USE FOR UNKNOWN INDICATION
     Route: 048
     Dates: start: 20060419, end: 20060426
  3. VANCOMYCIN HYDROCHLORIDE [Suspect]
     Indication: DRUG USE FOR UNKNOWN INDICATION
     Route: 065
     Dates: start: 20060414, end: 20060501
  4. LACTULOSE [Concomitant]
  5. COLOXYL WITH SENNA [Concomitant]
  6. ENDONE [Concomitant]
  7. RANITIDINE [Concomitant]
  8. NIMODIPINE [Concomitant]
  9. METOCLOPRAMIDE HCL [Concomitant]
  10. PARACETAMOL [Concomitant]

REACTIONS (8)
  - ALANINE AMINOTRANSFERASE INCREASED [None]
  - BLOOD ALKALINE PHOSPHATASE INCREASED [None]
  - GAMMA-GLUTAMYLTRANSFERASE INCREASED [None]
  - LIVER FUNCTION TEST ABNORMAL [None]
  - NEUTROPENIA [None]
  - RASH [None]
  - URTICARIA GENERALISED [None]
  - WHITE BLOOD CELL COUNT DECREASED [None]
